FAERS Safety Report 14815637 (Version 3)
Quarter: 2018Q2

REPORT INFORMATION
  Report Type: Spontaneous
  Country: US (occurrence: US)
  Receive Date: 20180426
  Receipt Date: 20180516
  Transmission Date: 20180711
  Serious: No
  Sender: FDA-Public Use
  Company Number: US-PFIZER INC-2018170080

PATIENT
  Age: 65 Year
  Sex: Male
  Weight: 66.68 kg

DRUGS (8)
  1. LISINOPRIL. [Concomitant]
     Active Substance: LISINOPRIL
     Indication: HYPERTENSION
     Dosage: 20 MG, ONCE A DAY
     Route: 048
     Dates: start: 2018
  2. HALDOL [Concomitant]
     Active Substance: HALOPERIDOL
     Indication: NEURALGIA
     Dosage: 5 MG, ONCE AT NIGHT
     Route: 048
  3. HALDOL [Concomitant]
     Active Substance: HALOPERIDOL
     Indication: NEUROPATHY PERIPHERAL
  4. HALDOL [Concomitant]
     Active Substance: HALOPERIDOL
     Indication: SLEEP DISORDER
  5. LEVITRA [Suspect]
     Active Substance: VARDENAFIL HYDROCHLORIDE TRIHYDRATE
     Indication: ERECTILE DYSFUNCTION
     Dosage: 20 MG, TWICE A DAY
     Route: 048
     Dates: start: 201804
  6. HALOPERIDOL. [Concomitant]
     Active Substance: HALOPERIDOL
     Indication: NEUROPATHY PERIPHERAL
     Dosage: 5 MG, ONCE AT NIGHT
     Route: 048
  7. VIAGRA [Suspect]
     Active Substance: SILDENAFIL CITRATE
     Indication: ERECTILE DYSFUNCTION
     Dosage: 100 MG, AS NEEDED
     Route: 048
  8. BENZTROPINE. [Concomitant]
     Active Substance: BENZTROPINE
     Indication: NEUROPATHY PERIPHERAL
     Dosage: 2 MG, ONCE AT NIGHT
     Route: 048

REACTIONS (2)
  - Product use in unapproved indication [Unknown]
  - Drug ineffective [Not Recovered/Not Resolved]

NARRATIVE: CASE EVENT DATE: 201803
